FAERS Safety Report 7987795-5 (Version None)
Quarter: 2011Q4

REPORT INFORMATION
  Report Type: 
  Country: None (occurrence: None)
  Receive Date: 20111216
  Receipt Date: 20101108
  Transmission Date: 20120403
  Serious: No
  Sender: FDA-Public Use
  Company Number: US-BRISTOL-MYERS SQUIBB COMPANY-15373715

PATIENT
  Age: 18 Year
  Sex: Male

DRUGS (2)
  1. LITHIUM CARBONATE [Concomitant]
  2. ABILIFY [Suspect]
     Dosage: DOSE DECREASED TO 10 MG

REACTIONS (2)
  - MUSCULOSKELETAL PAIN [None]
  - MUSCULOSKELETAL STIFFNESS [None]
